FAERS Safety Report 7657418-3 (Version None)
Quarter: 2011Q3

REPORT INFORMATION
  Report Type: 
  Country: None (occurrence: None)
  Receive Date: 20110804
  Receipt Date: 20110617
  Transmission Date: 20111222
  Serious: No
  Sender: FDA-Public Use
  Company Number: US-ASTRAZENECA-2011SE37098

PATIENT
  Age: 62 Year
  Sex: Male

DRUGS (2)
  1. VANDETANIB [Suspect]
     Indication: THYROID CANCER
     Route: 048
     Dates: start: 20110607
  2. IMODIUM [Concomitant]
     Indication: DIARRHOEA

REACTIONS (3)
  - MYALGIA INTERCOSTAL [None]
  - HOT FLUSH [None]
  - DRY MOUTH [None]
